FAERS Safety Report 8454782-2 (Version None)
Quarter: 2012Q2

REPORT INFORMATION
  Report Type: 
  Country: None (occurrence: None)
  Receive Date: 20120621
  Receipt Date: 20120611
  Transmission Date: 20120825
  Serious: Yes (Other)
  Sender: FDA-Public Use
  Company Number: FR-JNJFOC-20120606204

PATIENT
  Age: 40 Year
  Sex: Male

DRUGS (2)
  1. REMICADE [Suspect]
     Indication: CROHN'S DISEASE
     Route: 042
  2. REMICADE [Suspect]
     Dosage: HAD ALREADY RECEIVED 25 INFLIXIMAB INFUSIONS
     Route: 042

REACTIONS (1)
  - HENOCH-SCHONLEIN PURPURA [None]
